FAERS Safety Report 16093946 (Version 1)
Quarter: 2019Q2

REPORT INFORMATION
  Report Type: Spontaneous
  Country: US (occurrence: US)
  Receive Date: 20190319
  Receipt Date: 20190319
  Transmission Date: 20190711
  Serious: Yes (Hospitalization)
  Sender: FDA-Public Use
  Company Number: None

PATIENT
  Age: 64 Year
  Sex: Male
  Weight: 80.9 kg

DRUGS (4)
  1. HYDROCODONE-ACETAMINOPHEN 5-325 [Concomitant]
  2. VOTRIENT [Suspect]
     Active Substance: PAZOPANIB HYDROCHLORIDE
     Indication: RENAL CELL CARCINOMA
     Route: 048
     Dates: start: 20180731, end: 20181022
  3. ALBUTEROL INHALER [Concomitant]
     Active Substance: ALBUTEROL
  4. AMLODIPINE [Concomitant]
     Active Substance: AMLODIPINE BESYLATE

REACTIONS (6)
  - Pleural effusion [None]
  - Metastatic renal cell carcinoma [None]
  - Disease progression [None]
  - Swelling [None]
  - Lymphadenopathy [None]
  - International normalised ratio increased [None]

NARRATIVE: CASE EVENT DATE: 20181022
